FAERS Safety Report 17511076 (Version 3)
Quarter: 2022Q2

REPORT INFORMATION
  Report Type: Report from Study
  Country: US (occurrence: US)
  Receive Date: 20200306
  Receipt Date: 20220513
  Transmission Date: 20220720
  Serious: No
  Sender: FDA-Public Use
  Company Number: US-HARMONY BIOSCIENCES-2020HMY00060

PATIENT
  Sex: Male
  Weight: 106.58 kg

DRUGS (13)
  1. WAKIX [Suspect]
     Active Substance: PITOLISANT HYDROCHLORIDE
     Indication: Somnolence
     Dosage: 4.45 MG, 1X/DAY
     Route: 048
     Dates: start: 2019, end: 2019
  2. WAKIX [Suspect]
     Active Substance: PITOLISANT HYDROCHLORIDE
     Dosage: 8.9 MG, 1X/DAY
     Dates: start: 2019, end: 2019
  3. WAKIX [Suspect]
     Active Substance: PITOLISANT HYDROCHLORIDE
     Indication: Somnolence
     Dosage: 17.8 MG, 1X/DAY
     Route: 048
     Dates: start: 2019
  4. WAKIX [Suspect]
     Active Substance: PITOLISANT HYDROCHLORIDE
     Dosage: 35.6 MG, 1X/DAY
     Route: 048
  5. WAKIX [Suspect]
     Active Substance: PITOLISANT HYDROCHLORIDE
     Dosage: 17.8 MG, 1X/DAY
     Route: 048
     Dates: end: 2020
  6. WAKIX [Suspect]
     Active Substance: PITOLISANT HYDROCHLORIDE
     Dosage: 35.6 MG, 1X/DAY
     Route: 048
     Dates: start: 2020
  7. NUVIGIL [Suspect]
     Active Substance: ARMODAFINIL
     Indication: Somnolence
     Dosage: 2 DOSAGE UNITS, 1X/DAY
  8. NUVIGIL [Suspect]
     Active Substance: ARMODAFINIL
     Dosage: 1 DOSAGE UNITS
  9. LOVASTATIN [Concomitant]
     Active Substance: LOVASTATIN
  10. LISINOPRIL [Concomitant]
     Active Substance: LISINOPRIL
  11. METFORMIN [Concomitant]
     Active Substance: METFORMIN HYDROCHLORIDE
  12. GLIPIZIDE [Concomitant]
     Active Substance: GLIPIZIDE
     Dosage: UNK
     Dates: end: 201910
  13. INSULIN NOS [Concomitant]
     Active Substance: INSULIN NOS
     Dosage: UNK
     Dates: start: 201910

REACTIONS (2)
  - Middle insomnia [Recovered/Resolved]
  - Drug ineffective for unapproved indication [Unknown]

NARRATIVE: CASE EVENT DATE: 20190101
